FAERS Safety Report 19599128 (Version 1)
Quarter: 2021Q3

REPORT INFORMATION
  Report Type: Spontaneous
  Country: US (occurrence: US)
  Receive Date: 20210722
  Receipt Date: 20210722
  Transmission Date: 20211014
  Serious: No
  Sender: FDA-Public Use
  Company Number: None

PATIENT
  Age: 68 Year
  Sex: Male

DRUGS (1)
  1. HEPARIN (HEPARIN NA (BEEF) 5000UNT/ML INJ) [Suspect]
     Active Substance: HEPARIN SODIUM, BOVINE
     Route: 058
     Dates: start: 20210623, end: 20210701

REACTIONS (1)
  - Thrombocytopenia [None]

NARRATIVE: CASE EVENT DATE: 20210630
